FAERS Safety Report 6649623-X (Version None)
Quarter: 2010Q1

REPORT INFORMATION
  Report Type: 
  Country: None (occurrence: None)
  Receive Date: 20100324
  Receipt Date: 20100315
  Transmission Date: 20100710
  Serious: Yes (Other)
  Sender: FDA-Public Use
  Company Number: US-AMGEN-TCS397234

PATIENT
  Sex: Female
  Weight: 109 kg

DRUGS (11)
  1. ENBREL [Suspect]
     Indication: RHEUMATOID ARTHRITIS
     Route: 058
     Dates: start: 20011001
  2. ADVIL LIQUI-GELS [Concomitant]
     Route: 048
  3. ACETAMINOPHEN AND HYDROCODONE BITARTRATE [Concomitant]
     Route: 048
  4. PREVACID [Concomitant]
     Route: 048
  5. LOPROX [Concomitant]
  6. FLEXERIL [Concomitant]
     Route: 048
  7. SYNTHROID [Concomitant]
     Route: 048
  8. KETOCONAZOLE [Concomitant]
  9. VANCENASE AQ [Concomitant]
  10. IBUPROFEN [Concomitant]
  11. LAMISIL [Concomitant]
     Route: 048

REACTIONS (19)
  - ARTHRALGIA [None]
  - BACK PAIN [None]
  - CARPAL TUNNEL SYNDROME [None]
  - DYSPHAGIA [None]
  - GAIT DISTURBANCE [None]
  - HYPOAESTHESIA [None]
  - JOINT EFFUSION [None]
  - JOINT WARMTH [None]
  - MUSCULOSKELETAL PAIN [None]
  - OEDEMA PERIPHERAL [None]
  - OESOPHAGEAL STENOSIS [None]
  - OESOPHAGITIS [None]
  - OSTEOARTHRITIS [None]
  - PYREXIA [None]
  - RED BLOOD CELL SEDIMENTATION RATE INCREASED [None]
  - RHEUMATOID ARTHRITIS [None]
  - RHEUMATOID NODULE [None]
  - ROTATOR CUFF SYNDROME [None]
  - SJOGREN'S SYNDROME [None]
